FAERS Safety Report 8576607 (Version 2)
Quarter: 2013Q4

REPORT INFORMATION
  Report Type: Spontaneous
  Country: US (occurrence: US)
  Receive Date: 20120523
  Receipt Date: 20131018
  Transmission Date: 20140711
  Serious: Yes (Other)
  Sender: FDA-Public Use
  Company Number: US-PFIZER INC-2012120532

PATIENT
  Age: 60 Year
  Sex: Female
  Weight: 58.96 kg

DRUGS (8)
  1. LYRICA [Suspect]
     Indication: NEURALGIA
     Dosage: 75 MG, 2X/DAY
     Dates: start: 2012
  2. LYRICA [Suspect]
     Indication: FIBROMYALGIA
     Dosage: 50 MG IN MORNING AND 75 MG AT NIGHT
     Dates: start: 2012
  3. LYRICA [Suspect]
     Dosage: UNK
  4. ZEBETA [Concomitant]
     Indication: HYPERTENSION
     Dosage: 7.5 MG IN MORNING AND 5 MG AT NIGHT
  5. AVAPRO [Concomitant]
     Indication: HYPERTENSION
     Dosage: 75 MG, DAILY
  6. MIRALAX [Concomitant]
     Dosage: UNK
     Dates: start: 20120515
  7. BISOPROLOL FUMARATE [Concomitant]
     Indication: HYPERTENSION
     Dosage: 10 MG, 2X/DAY
  8. IRBESARTAN [Concomitant]
     Indication: HYPERTENSION
     Dosage: 75 MG, 2X/DAY

REACTIONS (9)
  - Abasia [Recovering/Resolving]
  - Drug administration error [Unknown]
  - Local swelling [Recovering/Resolving]
  - Erythema [Recovering/Resolving]
  - Skin depigmentation [Unknown]
  - Pain [Recovering/Resolving]
  - Weight increased [Unknown]
  - Limb discomfort [Recovering/Resolving]
  - Drug ineffective [Unknown]
